FAERS Safety Report 5030243-8 (Version None)
Quarter: 2006Q2

REPORT INFORMATION
  Report Type: 
  Country: None (occurrence: None)
  Receive Date: 20060620
  Receipt Date: 20060608
  Transmission Date: 20061013
  Serious: Yes (Hospitalization)
  Sender: FDA-Public Use
  Company Number: US-ROCHE-451338

PATIENT
  Age: 79 Year
  Sex: Female
  Weight: 86.2 kg

DRUGS (5)
  1. BONIVA [Suspect]
     Indication: OSTEOPOROSIS
     Route: 048
     Dates: start: 20060215
  2. IMDUR [Concomitant]
     Route: 048
  3. ASPIRIN [Concomitant]
     Route: 048
  4. LOTREL [Concomitant]
     Indication: BLOOD PRESSURE
     Route: 048
     Dates: start: 20051115
  5. CALCIUM GLUCONATE [Concomitant]
     Route: 048

REACTIONS (3)
  - HYPERTENSION [None]
  - INFLUENZA [None]
  - LOSS OF CONSCIOUSNESS [None]
